FAERS Safety Report 5167032-X (Version None)
Quarter: 2006Q4

REPORT INFORMATION
  Report Type: 
  Country: None (occurrence: None)
  Receive Date: 20061207
  Receipt Date: 20061006
  Transmission Date: 20070319
  Serious: Yes (Other)
  Sender: FDA-Public Use
  Company Number: PHEH2006US12623

PATIENT
  Age: 14 Year
  Sex: Female

DRUGS (1)
  1. ZELNORM [Suspect]
     Indication: REFLUX OESOPHAGITIS
     Dosage: 6 MG, BID
     Dates: start: 20060801

REACTIONS (5)
  - ABDOMINAL PAIN UPPER [None]
  - DIARRHOEA [None]
  - DIZZINESS [None]
  - DRUG INEFFECTIVE [None]
  - GASTROOESOPHAGEAL REFLUX DISEASE [None]
